FAERS Safety Report 4785896-6 (Version None)
Quarter: 2005Q4

REPORT INFORMATION
  Report Type: 
  Country: None (occurrence: None)
  Receive Date: 20051003
  Receipt Date: 20050922
  Transmission Date: 20060501
  Serious: Yes (Other)
  Sender: FDA-Public Use
  Company Number: CA-ROCHE-418778

PATIENT
  Age: 73 Year
  Sex: Male

DRUGS (5)
  1. NAPROSYN [Suspect]
     Indication: DRUG USE FOR UNKNOWN INDICATION
     Route: 065
  2. VERAPAMIL [Suspect]
     Indication: DRUG USE FOR UNKNOWN INDICATION
     Route: 065
  3. EFFEXOR XR [Suspect]
     Indication: DRUG USE FOR UNKNOWN INDICATION
     Route: 065
  4. RAMIPRIL [Concomitant]
  5. SLOW-K [Concomitant]
     Dosage: UNITS REPORTED AS MILLIEQUIVALENTS

REACTIONS (3)
  - BLOOD PRESSURE FLUCTUATION [None]
  - BRADYCARDIA [None]
  - SUICIDE ATTEMPT [None]
